FAERS Safety Report 4333244-8 (Version None)
Quarter: 2004Q1

REPORT INFORMATION
  Report Type: 
  Country: None (occurrence: None)
  Receive Date: 20040330
  Receipt Date: 20040317
  Transmission Date: 20041129
  Serious: Yes (Hospitalization)
  Sender: FDA-Public Use
  Company Number: 04P-163-0254095-00

PATIENT
  Age: 67 Year
  Sex: Male

DRUGS (6)
  1. DEPAKOTE [Suspect]
  2. ASASANTIN [Suspect]
     Indication: PROPHYLAXIS
     Dosage: 25/200 MG TWICE A DAY
     Dates: start: 20030101
  3. RISPERIDONE [Suspect]
  4. OMEPRAZOLE [Concomitant]
  5. SERTRALINE HYDROCHLORIDE [Concomitant]
  6. ROSIGLITAZONE MALEATE [Concomitant]

REACTIONS (9)
  - ANAEMIA [None]
  - CARDIAC DISORDER [None]
  - CEREBROVASCULAR ACCIDENT [None]
  - CORONARY ARTERY SURGERY [None]
  - DEMENTIA [None]
  - FOOT AMPUTATION [None]
  - TRANSIENT ISCHAEMIC ATTACK [None]
  - TREMOR [None]
  - ULCER [None]
